FAERS Safety Report 7884457 (Version 19)
Quarter: 2014Q2

REPORT INFORMATION
  Report Type: Report from Study
  Country: US (occurrence: US)
  Receive Date: 20110404
  Receipt Date: 20140519
  Transmission Date: 20141212
  Serious: Yes (Death, Hospitalization)
  Sender: FDA-Public Use
  Company Number: PHHO2011US05095

PATIENT
  Age: 60 Year
  Sex: Female
  Weight: 61 kg

DRUGS (11)
  1. AFINITOR [Suspect]
     Indication: BREAST CANCER METASTATIC
     Dosage: BLINDED STUDY
     Route: 048
     Dates: start: 20101223, end: 20110318
  2. VANCOMYCIN [Suspect]
     Dosage: 1 G, Q12H
     Dates: start: 20110316
  3. COMPARATOR PACLITAXEL [Suspect]
     Indication: BREAST CANCER METASTATIC
     Dosage: 142 MG
     Route: 042
     Dates: start: 20101223, end: 20110303
  4. COMPARATOR TRASTUZUMAB [Suspect]
     Indication: BREAST CANCER METASTATIC
     Dosage: 137 MG
     Route: 042
     Dates: start: 20101223, end: 20110310
  5. XANAX [Concomitant]
     Indication: ANXIETY
  6. VICODIN [Concomitant]
     Indication: NEPHROLITHIASIS
  7. BENADRYL [Concomitant]
     Indication: SWOLLEN TONGUE
  8. DUONEB [Concomitant]
  9. PROTONIX [Concomitant]
  10. LOVENOX [Concomitant]
  11. METOPROLOL [Concomitant]

REACTIONS (11)
  - Pneumonia [Not Recovered/Not Resolved]
  - Renal failure acute [Not Recovered/Not Resolved]
  - Oedema [Not Recovered/Not Resolved]
  - Urosepsis [Fatal]
  - Escherichia infection [Fatal]
  - Asthenia [Fatal]
  - Pyrexia [Fatal]
  - Dyspnoea [Fatal]
  - Multi-organ failure [Not Recovered/Not Resolved]
  - Hypoxia [Not Recovered/Not Resolved]
  - Tachycardia [Unknown]
